FAERS Safety Report 6172613-0 (Version None)
Quarter: 2009Q2

REPORT INFORMATION
  Report Type: 
  Country: None (occurrence: None)
  Receive Date: 20090428
  Receipt Date: 20090416
  Transmission Date: 20091009
  Serious: Yes (Other)
  Sender: FDA-Public Use
  Company Number: 234226K09USA

PATIENT
  Age: 56 Year
  Sex: Female
  Weight: 68 kg

DRUGS (1)
  1. REBIF [Suspect]
     Indication: MULTIPLE SCLEROSIS
     Dosage: 44 MCG, 3 IN 1 WEEKS, SUBCUTANEOUS
     Route: 058
     Dates: start: 20050509

REACTIONS (11)
  - ANOREXIA [None]
  - ASTHENIA [None]
  - FALL [None]
  - HEAD INJURY [None]
  - HEART VALVE INCOMPETENCE [None]
  - HYPERTENSION [None]
  - INJECTION SITE MASS [None]
  - INSOMNIA [None]
  - LACERATION [None]
  - MUSCULAR WEAKNESS [None]
  - PAIN [None]
